FAERS Safety Report 13698123 (Version 3)
Quarter: 2017Q4

REPORT INFORMATION
  Report Type: Spontaneous
  Country: US (occurrence: US)
  Receive Date: 20170628
  Receipt Date: 20171102
  Transmission Date: 20180320
  Serious: No
  Sender: FDA-Public Use
  Company Number: US-PFIZER INC-2017279401

PATIENT
  Age: 73 Year
  Sex: Female

DRUGS (6)
  1. SILVADENE [Suspect]
     Active Substance: SILVER SULFADIAZINE
     Dosage: UNK
  2. BACTRIM [Suspect]
     Active Substance: SULFAMETHOXAZOLE\TRIMETHOPRIM
     Dosage: UNK
  3. CEPHALEXIN. [Suspect]
     Active Substance: CEPHALEXIN
     Dosage: UNK
  4. MINOCYCLINE HCL [Suspect]
     Active Substance: MINOCYCLINE HYDROCHLORIDE
     Dosage: UNK
  5. SENSI-CARE (PETROLATUM\ZINC OXIDE) [Suspect]
     Active Substance: PETROLATUM\ZINC OXIDE
     Dosage: UNK
  6. ABSORBASE [Suspect]
     Active Substance: EMOLLIENTS
     Dosage: UNK

REACTIONS (1)
  - Drug hypersensitivity [Unknown]
